FAERS Safety Report 12122338 (Version 2)
Quarter: 2017Q1

REPORT INFORMATION
  Report Type: Report from Study
  Country: CA (occurrence: CA)
  Receive Date: 20160226
  Receipt Date: 20170317
  Transmission Date: 20170428
  Serious: Yes (Other)
  Sender: FDA-Public Use
  Company Number: PHHY2016CA009781

PATIENT
  Age: 59 Year
  Sex: Female

DRUGS (2)
  1. ZOMETA [Suspect]
     Active Substance: ZOLEDRONIC ACID
     Dosage: 4 MG, (EVERY 26 WEEKS)
     Route: 065
     Dates: start: 20150805
  2. ZOMETA [Suspect]
     Active Substance: ZOLEDRONIC ACID
     Indication: BREAST CANCER
     Dosage: 4 MG (EVERY 6 MONTHS)
     Route: 042
     Dates: start: 20150123, end: 20150123

REACTIONS (5)
  - Blood parathyroid hormone increased [Unknown]
  - Blood pressure increased [Unknown]
  - Inappropriate schedule of drug administration [Unknown]
  - Parathyroid tumour [Unknown]
  - Calcium ionised increased [Unknown]

NARRATIVE: CASE EVENT DATE: 20160119
